FAERS Safety Report 23250679 (Version 3)
Quarter: 2024Q2

REPORT INFORMATION
  Report Type: Spontaneous
  Country: US (occurrence: US)
  Receive Date: 20231201
  Receipt Date: 20240515
  Transmission Date: 20240716
  Serious: Yes (Other)
  Sender: FDA-Public Use
  Company Number: US-BRISTOL-MYERS SQUIBB COMPANY-2023-173810

PATIENT
  Age: 76 Year
  Sex: Male

DRUGS (2)
  1. REVLIMID [Suspect]
     Active Substance: LENALIDOMIDE
     Indication: Plasma cell myeloma
     Dosage: TAKE 1 CAPSULE BY MOUTH EVERY DAY FOR 3 WEEKS (DAYS 1- 21) ON THEN 1 WEEK OFF (28 DAY CYCLE)
     Route: 048
  2. REVLIMID [Suspect]
     Active Substance: LENALIDOMIDE
     Dosage: TAKE 1 CAPSULE BY MOUTH EVERY DAY FOR 3 WEEKS (DAYS 1- 21) ON THEN 1 WEEK OFF (28 DAY CYCLE)
     Route: 048

REACTIONS (3)
  - Arthritis [Not Recovered/Not Resolved]
  - Product dose omission in error [Unknown]
  - Plasma cell myeloma [Not Recovered/Not Resolved]
